FAERS Safety Report 8390702-7 (Version None)
Quarter: 2012Q2

REPORT INFORMATION
  Report Type: 
  Country: None (occurrence: None)
  Receive Date: 20120529
  Receipt Date: 20120524
  Transmission Date: 20120825
  Serious: Yes (Other)
  Sender: FDA-Public Use
  Company Number: PHHY2012US030006

PATIENT
  Age: 30 Year
  Sex: Female

DRUGS (2)
  1. CYCLOBENAZPRINE [Suspect]
     Dosage: 5 MG, UNK
  2. AMITRIPTYLINE HCL [Suspect]

REACTIONS (2)
  - SHOCK [None]
  - CARDIAC ARREST [None]
